FAERS Safety Report 9133249 (Version 3)
Quarter: 2014Q1

REPORT INFORMATION
  Report Type: Spontaneous
  Country: US (occurrence: US)
  Receive Date: 20130301
  Receipt Date: 20140212
  Transmission Date: 20141002
  Serious: Yes (Hospitalization)
  Sender: FDA-Public Use
  Company Number: US-B.I. PHARMACEUTICALS,INC./RIDGEFIELD-2013-BI-05262BP

PATIENT
  Age: 67 Year
  Sex: Male
  Weight: 97.09 kg

DRUGS (16)
  1. PRADAXA [Suspect]
     Indication: ANTICOAGULANT THERAPY
     Dosage: 300 MG
     Dates: start: 20111026, end: 20120122
  2. PRADAXA [Suspect]
     Indication: ATRIAL FIBRILLATION
  3. LISINOPRIL [Concomitant]
  4. METOPROLOL [Concomitant]
     Dosage: 100 MG
  5. PRILOSEC [Concomitant]
     Dosage: 20 MG
  6. ASPIRIN [Concomitant]
  7. MONOPRIL [Concomitant]
  8. ALBUTEROL [Concomitant]
  9. AMIODARONE [Concomitant]
     Dosage: 200 MG
  10. SERTRALINE [Concomitant]
     Dosage: 50 MG
  11. PRAVACHOL [Concomitant]
     Dosage: 60 MG
  12. GLIMEPIRIDE [Concomitant]
     Dosage: 4 MG
  13. NORVASC [Concomitant]
     Dosage: 10 MG
  14. AMBIEN [Concomitant]
     Dosage: 10 MG
  15. TYLENOL ARTHRITIS [Concomitant]
     Dosage: 650 MG
  16. VITAMIN D [Concomitant]
     Dosage: 3000 U

REACTIONS (2)
  - Gastrointestinal haemorrhage [Recovered/Resolved]
  - Anaemia [Unknown]
